FAERS Safety Report 23147096 (Version 2)
Quarter: 2023Q4

REPORT INFORMATION
  Report Type: Spontaneous
  Country: US (occurrence: US)
  Receive Date: 20231106
  Receipt Date: 20231201
  Transmission Date: 20240110
  Serious: Yes (Hospitalization)
  Sender: FDA-Public Use
  Company Number: US-NAPO PHARMACEUTICALS-2023US003952

PATIENT
  Sex: Male

DRUGS (1)
  1. MYTESI [Suspect]
     Active Substance: CROFELEMER
     Indication: HIV infection
     Dosage: 125 MG, BID
     Route: 048
     Dates: start: 202308

REACTIONS (4)
  - Hospitalisation [Unknown]
  - Drug tolerance [Unknown]
  - Pruritus [Unknown]
  - Hypersensitivity [Unknown]
